FAERS Safety Report 7170933-4 (Version None)
Quarter: 2010Q4

REPORT INFORMATION
  Report Type: 
  Country: None (occurrence: None)
  Receive Date: 20101217
  Receipt Date: 20101208
  Transmission Date: 20110411
  Serious: Yes (Other)
  Sender: FDA-Public Use
  Company Number: BR-MEDIMMUNE-MEDI-0011531

PATIENT
  Sex: Male
  Weight: 6.7 kg

DRUGS (8)
  1. SYNAGIS [Suspect]
     Route: 030
     Dates: start: 20100428, end: 20100428
  2. SYNAGIS [Suspect]
     Route: 030
     Dates: start: 20100801, end: 20100801
  3. SYNAGIS [Suspect]
     Indication: BRONCHOPULMONARY DYSPLASIA
  4. SYNAGIS [Suspect]
  5. FERROUS SULFATE [Concomitant]
     Indication: VITAMIN SUPPLEMENTATION
     Route: 048
  6. MULTI-VITAMINS [Concomitant]
     Route: 048
  7. BENZALKONIUM CHLORIDE [Concomitant]
     Route: 045
  8. PURAN [Concomitant]
     Indication: HYPOTHYROIDISM
     Route: 048
     Dates: start: 20091101

REACTIONS (7)
  - BRONCHITIS [None]
  - COUGH [None]
  - HEARING IMPAIRED [None]
  - HYPOTHYROIDISM [None]
  - NASOPHARYNGITIS [None]
  - RHINITIS [None]
  - WEIGHT GAIN POOR [None]
